FAERS Safety Report 25422999 (Version 2)
Quarter: 2025Q2

REPORT INFORMATION
  Report Type: Report from Study
  Country: ZA (occurrence: ZA)
  Receive Date: 20250611
  Receipt Date: 20250626
  Transmission Date: 20250716
  Serious: Yes (Other)
  Sender: SANDOZ
  Company Number: ZA-SANDOZ-SDZ2023ZA067200

PATIENT
  Sex: Male
  Weight: 57.986 kg

DRUGS (4)
  1. ERELZI [Suspect]
     Active Substance: ETANERCEPT-SZZS
     Indication: Rheumatoid arthritis
     Route: 058
     Dates: start: 20230609
  2. ERELZI [Suspect]
     Active Substance: ETANERCEPT-SZZS
     Dosage: 50 MG, QW
     Route: 058
     Dates: start: 20230824
  3. ERELZI [Suspect]
     Active Substance: ETANERCEPT-SZZS
     Dosage: 50 MG, ONCE A WEEK
     Route: 058
     Dates: start: 20230824
  4. ERELZI [Suspect]
     Active Substance: ETANERCEPT-SZZS
     Dosage: 50 MG, QW (ONCE A WEEK)
     Route: 058

REACTIONS (5)
  - Neuralgia [Not Recovered/Not Resolved]
  - Blood creatinine increased [Unknown]
  - C-reactive protein abnormal [Unknown]
  - General physical health deterioration [Unknown]
  - Therapy cessation [Unknown]
